FAERS Safety Report 16688831 (Version 1)
Quarter: 2019Q3

REPORT INFORMATION
  Report Type: Spontaneous
  Country: US (occurrence: US)
  Receive Date: 20190809
  Receipt Date: 20190809
  Transmission Date: 20191004
  Serious: Yes (Other)
  Sender: FDA-Public Use
  Company Number: US-PFIZER INC-2019143033

PATIENT
  Age: 53 Year
  Sex: Female

DRUGS (38)
  1. DEXILANT [Suspect]
     Active Substance: DEXLANSOPRAZOLE
     Indication: DYSPEPSIA
     Dosage: 40 MG, UNK
     Dates: start: 2002
  2. DEXILANT [Suspect]
     Active Substance: DEXLANSOPRAZOLE
     Indication: GASTROOESOPHAGEAL REFLUX DISEASE
     Dosage: 60 MG, UNK
     Dates: start: 2012
  3. PROMETHAZINE [Concomitant]
     Active Substance: PROMETHAZINE HYDROCHLORIDE
     Indication: NAUSEA
     Dosage: UNK
     Dates: start: 200205, end: 201306
  4. AMOXICILLIN. [Concomitant]
     Active Substance: AMOXICILLIN
     Indication: INFECTION
     Dosage: UNK
     Dates: start: 200205, end: 200703
  5. HYDROCODONE/IBUPROFEN [Concomitant]
     Indication: ANALGESIC THERAPY
     Dosage: UNK
     Dates: start: 200402, end: 200403
  6. AZMACORT [Concomitant]
     Active Substance: TRIAMCINOLONE ACETONIDE
     Indication: INHALATION THERAPY
     Dosage: UNK
     Dates: start: 200403
  7. SKELAXIN [Concomitant]
     Active Substance: METAXALONE
     Indication: MUSCLE RELAXANT THERAPY
     Dosage: UNK
     Dates: start: 2005
  8. PROTONIX [Suspect]
     Active Substance: PANTOPRAZOLE SODIUM
     Indication: GASTROOESOPHAGEAL REFLUX DISEASE
     Dosage: UNK
     Route: 042
  9. PRILOSEC [Suspect]
     Active Substance: OMEPRAZOLE MAGNESIUM
     Indication: GASTROOESOPHAGEAL REFLUX DISEASE
     Dosage: 60 MG, UNK
     Dates: start: 2012
  10. VIOXX [Concomitant]
     Active Substance: ROFECOXIB
     Indication: INFLAMMATION
     Dosage: UNK
     Dates: start: 200208
  11. ACETAMINOPHEN;HYDROCODONE [Concomitant]
     Active Substance: ACETAMINOPHEN\HYDROCODONE
     Indication: ANALGESIC THERAPY
     Dosage: UNK
     Dates: start: 200401, end: 200510
  12. METHYLPREDNISOLONE. [Concomitant]
     Active Substance: METHYLPREDNISOLONE
     Indication: INFLAMMATION
     Dosage: UNK
     Dates: start: 200403
  13. TOPROL XL [Concomitant]
     Active Substance: METOPROLOL SUCCINATE
     Indication: BLOOD PRESSURE ABNORMAL
     Dosage: UNK
     Dates: start: 200405, end: 200604
  14. PRILOSEC [Suspect]
     Active Substance: OMEPRAZOLE MAGNESIUM
     Indication: DYSPEPSIA
     Dosage: 40 MG, UNK
     Dates: start: 2002
  15. NAPROXEN. [Concomitant]
     Active Substance: NAPROXEN
     Indication: ANALGESIC THERAPY
     Dosage: UNK
     Dates: start: 200404, end: 200405
  16. CRESTOR [Concomitant]
     Active Substance: ROSUVASTATIN CALCIUM
     Indication: BLOOD CHOLESTEROL ABNORMAL
     Dosage: UNK
     Dates: start: 200404, end: 201605
  17. GABAPENTIN. [Concomitant]
     Active Substance: GABAPENTIN
     Indication: SEIZURE
     Dosage: UNK
     Dates: start: 2006, end: 2016
  18. TEBAMIDE [Concomitant]
     Dosage: UNK
     Dates: start: 2004
  19. PROTONIX [Suspect]
     Active Substance: PANTOPRAZOLE SODIUM
     Dosage: 40 MG, UNK
     Dates: start: 2007
  20. ESOMEPRAZOLE. [Suspect]
     Active Substance: ESOMEPRAZOLE MAGNESIUM
     Indication: GASTROOESOPHAGEAL REFLUX DISEASE
     Dosage: 40 MG, UNK
  21. HYDROCHLOROTHIAZIDE. [Concomitant]
     Active Substance: HYDROCHLOROTHIAZIDE
     Indication: BLOOD PRESSURE ABNORMAL
     Dosage: UNK
     Dates: start: 200203, end: 200405
  22. NORTRIPTYLINE [Concomitant]
     Active Substance: NORTRIPTYLINE
     Indication: ANTIDEPRESSANT THERAPY
     Dosage: UNK
     Dates: start: 200203, end: 201507
  23. TRAMADOL. [Concomitant]
     Active Substance: TRAMADOL
     Indication: ANALGESIC THERAPY
     Dosage: UNK
     Dates: start: 200402, end: 200501
  24. CELEBREX [Concomitant]
     Active Substance: CELECOXIB
     Indication: INFLAMMATION
     Dosage: UNK
     Dates: start: 200203
  25. PROPOXYPHENE AND ACETAMINOPHEN [Concomitant]
     Active Substance: ACETAMINOPHEN\PROPOXYPHENE NAPSYLATE
     Indication: ANALGESIC THERAPY
     Dosage: UNK
     Dates: start: 200405, end: 200409
  26. BABY ASPIRIN [Concomitant]
     Active Substance: ASPIRIN
     Indication: CARDIAC DISORDER
     Dosage: UNK
     Dates: start: 2001
  27. BENICAR [Concomitant]
     Active Substance: OLMESARTAN MEDOXOMIL
     Indication: BLOOD PRESSURE ABNORMAL
     Dosage: UNK
     Dates: start: 2005
  28. NEXIUM [Suspect]
     Active Substance: ESOMEPRAZOLE MAGNESIUM
     Indication: DYSPEPSIA
     Dosage: 40 MG, UNK
     Dates: start: 2002, end: 2016
  29. AMBIEN [Concomitant]
     Active Substance: ZOLPIDEM TARTRATE
     Indication: SLEEP DISORDER
     Dosage: UNK
     Dates: start: 200208
  30. OXYCONTIN [Concomitant]
     Active Substance: OXYCODONE HYDROCHLORIDE
     Indication: ANALGESIC THERAPY
     Dosage: UNK
     Dates: start: 200404, end: 201608
  31. NEXIUM [Suspect]
     Active Substance: ESOMEPRAZOLE MAGNESIUM
     Indication: GASTROOESOPHAGEAL REFLUX DISEASE
  32. LOTREL [Concomitant]
     Active Substance: AMLODIPINE BESYLATE\BENAZEPRIL HYDROCHLORIDE
     Indication: BLOOD PRESSURE ABNORMAL
     Dosage: UNK
     Dates: start: 200203, end: 200503
  33. ZANAFLEX [Concomitant]
     Active Substance: TIZANIDINE HYDROCHLORIDE
     Indication: MUSCLE RELAXANT THERAPY
     Dosage: UNK
     Dates: start: 200203, end: 201409
  34. ALBUTEROL. [Concomitant]
     Active Substance: ALBUTEROL
     Indication: INHALATION THERAPY
     Dosage: UNK
     Dates: start: 200205, end: 200602
  35. CYCLOBENZAPRINE. [Concomitant]
     Active Substance: CYCLOBENZAPRINE
     Indication: MUSCLE RELAXANT THERAPY
     Dosage: UNK
     Dates: start: 200401, end: 200405
  36. NAPROXEN SODIUM. [Concomitant]
     Active Substance: NAPROXEN SODIUM
     Indication: ANALGESIC THERAPY
     Dosage: UNK
     Dates: start: 200401, end: 200410
  37. AMITRIPTYLINE [Concomitant]
     Active Substance: AMITRIPTYLINE
     Indication: ANTIDEPRESSANT THERAPY
     Dosage: UNK
     Dates: start: 200403, end: 200609
  38. PEPCID AC OTC [Concomitant]
     Dosage: UNK

REACTIONS (5)
  - Chronic kidney disease [Not Recovered/Not Resolved]
  - Renal failure [Not Recovered/Not Resolved]
  - Acute kidney injury [Not Recovered/Not Resolved]
  - End stage renal disease [Not Recovered/Not Resolved]
  - Tubulointerstitial nephritis [Not Recovered/Not Resolved]

NARRATIVE: CASE EVENT DATE: 2006
